FAERS Safety Report 16758204 (Version 3)
Quarter: 2025Q2

REPORT INFORMATION
  Report Type: Spontaneous
  Country: CA (occurrence: None)
  Receive Date: 20190830
  Receipt Date: 20250617
  Transmission Date: 20250717
  Serious: Yes (Other)
  Sender: ORION
  Company Number: CA-ORION CORPORATION ORION PHARMA-TREX2019-3111

PATIENT
  Age: 60 Year
  Sex: Male

DRUGS (8)
  1. METHOTREXATE [Suspect]
     Active Substance: METHOTREXATE
     Indication: Immune-mediated myositis
  2. METHOTREXATE [Suspect]
     Active Substance: METHOTREXATE
     Indication: Myopathy
  3. AZATHIOPRINE [Suspect]
     Active Substance: AZATHIOPRINE
     Indication: Immune-mediated myositis
  4. AZATHIOPRINE [Suspect]
     Active Substance: AZATHIOPRINE
     Indication: Myopathy
  5. HUMAN IMMUNOGLOBULIN G [Suspect]
     Active Substance: HUMAN IMMUNOGLOBULIN G
     Indication: Immune-mediated myositis
  6. HUMAN IMMUNOGLOBULIN G [Suspect]
     Active Substance: HUMAN IMMUNOGLOBULIN G
     Indication: Myopathy
  7. PREDNISONE [Suspect]
     Active Substance: PREDNISONE
     Indication: Immune-mediated myositis
  8. PREDNISONE [Suspect]
     Active Substance: PREDNISONE
     Indication: Myopathy

REACTIONS (4)
  - Product use in unapproved indication [Unknown]
  - Disease recurrence [Unknown]
  - Immune-mediated myositis [Unknown]
  - Myopathy [Unknown]
